FAERS Safety Report 16646699 (Version 2)
Quarter: 2019Q3

REPORT INFORMATION
  Report Type: Spontaneous
  Country: IT (occurrence: IT)
  Receive Date: 20190730
  Receipt Date: 20190821
  Transmission Date: 20191004
  Serious: Yes (Life-Threatening)
  Sender: FDA-Public Use
  Company Number: IT-ROCHE-2363238

PATIENT
  Age: 62 Year
  Sex: Female

DRUGS (11)
  1. ONTRUZANT [Suspect]
     Active Substance: TRASTUZUMAB-DTTB
     Indication: BREAST NEOPLASM
     Route: 042
     Dates: start: 20190716, end: 20190716
  2. METHYLPREDNISOLONE SODIUM SUCCINATE. [Concomitant]
     Active Substance: METHYLPREDNISOLONE SODIUM SUCCINATE
  3. LASIX [Concomitant]
     Active Substance: FUROSEMIDE
  4. PERJETA [Concomitant]
     Active Substance: PERTUZUMAB
     Indication: BREAST NEOPLASM
     Route: 042
     Dates: start: 20190716, end: 20190716
  5. PERFALGAN [Concomitant]
     Active Substance: ACETAMINOPHEN
     Dosage: FORM STRENGTH: 10 MG/ML
     Route: 065
  6. DOCETAXEL. [Concomitant]
     Active Substance: DOCETAXEL
     Indication: BREAST NEOPLASM
     Route: 042
     Dates: start: 20190716, end: 20190716
  7. ROCEFIN [Concomitant]
     Active Substance: CEFTRIAXONE SODIUM
     Route: 065
  8. ZYLORIC [Concomitant]
     Active Substance: ALLOPURINOL
     Route: 065
  9. PANTORC [Concomitant]
     Active Substance: PANTOPRAZOLE SODIUM
     Route: 065
  10. TRIATEC [RAMIPRIL] [Concomitant]
     Active Substance: RAMIPRIL
  11. CLEXANE T [Concomitant]
     Active Substance: ENOXAPARIN SODIUM

REACTIONS (4)
  - Bronchospasm [Recovered/Resolved]
  - Infusion related reaction [Recovered/Resolved]
  - Respiratory rate increased [Recovered/Resolved]
  - Dyspnoea [Recovered/Resolved]

NARRATIVE: CASE EVENT DATE: 20190716
